FAERS Safety Report 6591130-7 (Version None)
Quarter: 2010Q1

REPORT INFORMATION
  Report Type: 
  Country: None (occurrence: None)
  Receive Date: 20100219
  Receipt Date: 20090316
  Transmission Date: 20100710
  Serious: Yes (Other)
  Sender: FDA-Public Use
  Company Number: US-BRISTOL-MYERS SQUIBB COMPANY-14544498

PATIENT
  Age: 70 Year
  Sex: Female
  Weight: 89 kg

DRUGS (4)
  1. KENALOG [Suspect]
     Indication: ROTATOR CUFF SYNDROME
     Dosage: INJECTION WAS RECEIVED ON 22DEC08.
  2. TOPROL-XL [Concomitant]
  3. HYZAAR [Concomitant]
  4. CADUET [Concomitant]

REACTIONS (4)
  - CHEST DISCOMFORT [None]
  - DIZZINESS [None]
  - PRURITUS [None]
  - URTICARIA [None]
